FAERS Safety Report 16386692 (Version 3)
Quarter: 2021Q1

REPORT INFORMATION
  Report Type: Spontaneous
  Country: ES (occurrence: ES)
  Receive Date: 20190604
  Receipt Date: 20210101
  Transmission Date: 20210419
  Serious: Yes (Hospitalization, Other)
  Sender: FDA-Public Use
  Company Number: ES-LUPIN PHARMACEUTICALS INC.-2019-03387

PATIENT
  Age: 73 Year
  Sex: Female

DRUGS (5)
  1. ATORVASTATIN CALCIUM. [Interacting]
     Active Substance: ATORVASTATIN CALCIUM
     Indication: MYOCARDIAL INFARCTION
  2. BISOPROLOL [Concomitant]
     Active Substance: BISOPROLOL
     Indication: PRODUCT USED FOR UNKNOWN INDICATION
     Dosage: 5 MILLIGRAM
     Route: 065
  3. TICAGRELOR. [Interacting]
     Active Substance: TICAGRELOR
     Indication: PRODUCT USED FOR UNKNOWN INDICATION
     Dosage: 90 MILLIGRAM
     Route: 065
  4. ATORVASTATIN CALCIUM. [Suspect]
     Active Substance: ATORVASTATIN CALCIUM
     Indication: DYSLIPIDAEMIA
     Dosage: 80 MILLIGRAM
     Route: 065
  5. ACETYLSALICYLIC ACID [Concomitant]
     Active Substance: ASPIRIN
     Indication: PRODUCT USED FOR UNKNOWN INDICATION
     Dosage: 100 MILLIGRAM
     Route: 065

REACTIONS (4)
  - Drug interaction [Unknown]
  - Rhabdomyolysis [Recovering/Resolving]
  - Acute kidney injury [Recovering/Resolving]
  - Metabolic acidosis [Recovered/Resolved]
